FAERS Safety Report 24644106 (Version 1)
Quarter: 2024Q4

REPORT INFORMATION
  Report Type: Spontaneous
  Country: US (occurrence: US)
  Receive Date: 20241120
  Receipt Date: 20241120
  Transmission Date: 20250114
  Serious: Yes (Other)
  Sender: FRESENIUS MEDICAL CARE
  Company Number: US-FMCRTG-FMC-2410-001338

PATIENT
  Age: 69 Year
  Sex: Male
  Weight: 84.5 kg

DRUGS (21)
  1. DELFLEX WITH DEXTROSE 1.5% LOW MAGNESIUM LOW CALCIUM [Suspect]
     Active Substance: CALCIUM CHLORIDE\DEXTROSE\MAGNESIUM CHLORIDE\SODIUM CHLORIDE\SODIUM LACTATE
     Indication: End stage renal disease
     Dosage: 7 TIMES A WEEK, CA 2.5 (MEQ/L) MG 0.5 (MEQ/L), DEXTROSE 1.5, 2.5%, 4.25 % AND LCODEXTRIN (EXTRANEAL)
     Route: 033
  2. DELFLEX WITH DEXTROSE 2.5% LOW MAGNESIUM LOW CALCIUM [Suspect]
     Active Substance: CALCIUM CHLORIDE\DEXTROSE\MAGNESIUM CHLORIDE\SODIUM CHLORIDE\SODIUM LACTATE
     Indication: End stage renal disease
     Dosage: 7 TIMES A WEEK, CA 2.5 (MEQ/L) MG 0.5 (MEQ/L), DEXTROSE 1.5, 2.5%, 4.25 % AND LCODEXTRIN (EXTRANEAL)
     Route: 033
  3. DELFLEX WITH DEXTROSE 4.25% LOW MAGNESIUM LOW CALCIUM [Suspect]
     Active Substance: CALCIUM CHLORIDE\DEXTROSE\MAGNESIUM CHLORIDE\SODIUM CHLORIDE\SODIUM LACTATE
     Indication: End stage renal disease
     Dosage: 7 TIMES A WEEK, CA 2.5 (MEQ/L) MG 0.5 (MEQ/L), DEXTROSE 1.5, 2.5%, 4.25 % AND LCODEXTRIN (EXTRANEAL)
     Route: 033
  4. ICODEXTRIN [Suspect]
     Active Substance: ICODEXTRIN
     Indication: End stage renal disease
  5. ASPIRIN [Concomitant]
     Active Substance: ASPIRIN
  6. BASAGLAR [Concomitant]
     Active Substance: INSULIN GLARGINE
  7. CLOPIDOGREL [Concomitant]
     Active Substance: CLOPIDOGREL BISULFATE
  8. DIALYVITE [Concomitant]
     Active Substance: ASCORBIC ACID\BIOTIN\CALCIUM PANTOTHENATE\COBALAMIN\FOLIC ACID\NIACINAMIDE\PYRIDOXINE HYDROCHLORIDE\
  9. EZETIMIBE [Concomitant]
     Active Substance: EZETIMIBE
  10. FAMOTIDINE [Concomitant]
     Active Substance: FAMOTIDINE
  11. GENTAMICIN [Concomitant]
     Active Substance: GENTAMICIN
  12. HUMALOG [Concomitant]
     Active Substance: INSULIN LISPRO
  13. LACTULOSE [Concomitant]
     Active Substance: LACTULOSE
  14. MIDODRINE [Concomitant]
     Active Substance: MIDODRINE
  15. MOMETASONE [Concomitant]
     Active Substance: MOMETASONE
  16. SEVELAMER CARBONATE [Concomitant]
     Active Substance: SEVELAMER CARBONATE
  17. TAMSULOSIN [Concomitant]
     Active Substance: TAMSULOSIN
  18. VITAMIN B12 [Concomitant]
     Active Substance: CYANOCOBALAMIN
  19. VITAMIN E [Concomitant]
     Active Substance: .ALPHA.-TOCOPHEROL
  20. XPHOZAH [Concomitant]
     Active Substance: TENAPANOR HYDROCHLORIDE
  21. ATORVASTATIN [Concomitant]
     Active Substance: ATORVASTATIN

REACTIONS (1)
  - Peritonitis bacterial [Recovering/Resolving]
